FAERS Safety Report 6428121-2 (Version None)
Quarter: 2009Q4

REPORT INFORMATION
  Report Type: 
  Country: None (occurrence: None)
  Receive Date: 20091105
  Receipt Date: 20091030
  Transmission Date: 20100525
  Serious: Yes (Hospitalization, Other)
  Sender: FDA-Public Use
  Company Number: US-ELI_LILLY_AND_COMPANY-US200911000221

PATIENT
  Sex: Male

DRUGS (15)
  1. HUMALOG [Suspect]
  2. LANTUS [Concomitant]
     Indication: TYPE 2 DIABETES MELLITUS
     Dosage: 10 U, 2/D
     Route: 058
     Dates: end: 20090101
  3. LANTUS [Concomitant]
     Dosage: 14 U, 2/D
     Route: 058
  4. ADVAIR DISKUS 100/50 [Concomitant]
  5. SPIRIVA [Concomitant]
  6. MUCINEX [Concomitant]
  7. PRILOSEC [Concomitant]
  8. TRAMADOL HCL [Concomitant]
  9. FUROSEMIDE [Concomitant]
  10. AMIODARONE HCL [Concomitant]
  11. XANAX [Concomitant]
  12. STOOL SOFTENER [Concomitant]
  13. ZOLPIDEM [Concomitant]
  14. WARFARIN SODIUM [Concomitant]
  15. FLOMAX [Concomitant]

REACTIONS (3)
  - BLOOD GLUCOSE INCREASED [None]
  - CARDIAC FAILURE CONGESTIVE [None]
  - CARDIAC PACEMAKER INSERTION [None]
